FAERS Safety Report 5000098-6 (Version None)
Quarter: 2006Q2

REPORT INFORMATION
  Report Type: 
  Country: None (occurrence: None)
  Receive Date: 20060501
  Receipt Date: 20060417
  Transmission Date: 20061013
  Serious: Yes (Death)
  Sender: FDA-Public Use
  Company Number: 2006052654

PATIENT

DRUGS (4)
  1. CLINDAMYCIN HCL [Suspect]
     Indication: SEPSIS
     Dosage: INTRAVENOUS
     Route: 042
  2. CEFOPERAZIN (CEFOPERAZIN) [Concomitant]
  3. CEFOTIAM HYDROCHLORIDE [Concomitant]
  4. ARICEPT [Concomitant]

REACTIONS (1)
  - CARDIAC ARREST [None]
